FAERS Safety Report 9807715 (Version 2)
Quarter: 2014Q2

REPORT INFORMATION
  Report Type: Spontaneous
  Country: US (occurrence: US)
  Receive Date: 20140110
  Receipt Date: 20140417
  Transmission Date: 20141212
  Serious: Yes (Other)
  Sender: FDA-Public Use
  Company Number: US-BAYER-2014-001349

PATIENT
  Age: 39 Year
  Sex: Female

DRUGS (1)
  1. MIRENA [Suspect]
     Indication: CONTRACEPTION
     Dosage: 20 MCG/24HR, CONT
     Route: 015
     Dates: start: 201309

REACTIONS (8)
  - Genital haemorrhage [Not Recovered/Not Resolved]
  - Dyspnoea [None]
  - Cough [None]
  - Heart rate increased [None]
  - Genital haemorrhage [None]
  - Asthenia [None]
  - Coagulation time prolonged [None]
  - Coeliac disease [None]
